FAERS Safety Report 5016442-X (Version None)
Quarter: 2006Q2

REPORT INFORMATION
  Report Type: 
  Country: None (occurrence: None)
  Receive Date: 20060531
  Receipt Date: 20060531
  Transmission Date: 20061013
  Serious: No
  Sender: FDA-Public Use
  Company Number: None

PATIENT
  Age: 56 Year
  Sex: Female
  Weight: 58.9676 kg

DRUGS (1)
  1. CIPROFLOXACIN [Suspect]
     Indication: CYSTITIS
     Dosage: 1 TABLET   TWICE A DAY  PO
     Route: 048
     Dates: start: 20041111, end: 20041116

REACTIONS (5)
  - CEREBRAL DISORDER [None]
  - MYALGIA [None]
  - PANIC ATTACK [None]
  - PARAESTHESIA [None]
  - WEIGHT DECREASED [None]
